FAERS Safety Report 6690475-X (Version None)
Quarter: 2010Q2

REPORT INFORMATION
  Report Type: 
  Country: None (occurrence: None)
  Receive Date: 20100419
  Receipt Date: 20100419
  Transmission Date: 20101027
  Serious: No
  Sender: FDA-Public Use
  Company Number: None

PATIENT
  Age: 85 Year
  Sex: Male
  Weight: 64.8644 kg

DRUGS (1)
  1. STROMECTOL [Suspect]
     Indication: ACARODERMATITIS
     Dosage: 3 TABLETS ONE TIME
     Dates: start: 20100402

REACTIONS (3)
  - DECREASED APPETITE [None]
  - DIZZINESS [None]
  - VOMITING [None]
